FAERS Safety Report 9024523 (Version 1)
Quarter: 2013Q1

REPORT INFORMATION
  Report Type: Spontaneous
  Country: US (occurrence: None)
  Receive Date: 20130122
  Receipt Date: 20130122
  Transmission Date: 20140127
  Serious: No
  Sender: FDA-Public Use
  Company Number: None

PATIENT
  Age: 55 Year
  Sex: Female
  Weight: 72.58 kg

DRUGS (2)
  1. METHYLPREDNISOLONE ACETATE [Suspect]
     Indication: CERVICAL SPINAL STENOSIS
     Dosage: 80MG PRN EPIDURAL
     Route: 008
     Dates: start: 20120717, end: 20120926
  2. METHYLPREDNISOLONE ACETATE [Suspect]
     Indication: RADICULAR PAIN
     Dosage: 80MG PRN EPIDURAL
     Route: 008
     Dates: start: 20120717, end: 20120926

REACTIONS (1)
  - Product contamination [None]
